FAERS Safety Report 10496368 (Version 2)
Quarter: 2014Q4

REPORT INFORMATION
  Report Type: Spontaneous
  Country: US (occurrence: US)
  Receive Date: 20141003
  Receipt Date: 20141008
  Transmission Date: 20150528
  Serious: Yes (Other)
  Sender: FDA-Public Use
  Company Number: US-GILEAD-2014-0117059

PATIENT
  Age: 52 Year
  Sex: Female

DRUGS (3)
  1. TYVASO [Concomitant]
     Active Substance: TREPROSTINIL
  2. REVATIO [Concomitant]
     Active Substance: SILDENAFIL CITRATE
  3. LETAIRIS [Suspect]
     Active Substance: AMBRISENTAN
     Indication: PRODUCT USED FOR UNKNOWN INDICATION
     Dosage: 10 MG, QD
     Route: 065
     Dates: start: 20080606

REACTIONS (3)
  - Flank pain [Unknown]
  - Pyelonephritis [Unknown]
  - Renal pain [Unknown]

NARRATIVE: CASE EVENT DATE: 20140928
